FAERS Safety Report 20346610 (Version 1)
Quarter: 2022Q1

REPORT INFORMATION
  Report Type: Spontaneous
  Country: US (occurrence: None)
  Receive Date: 20220118
  Receipt Date: 20220118
  Transmission Date: 20220424
  Serious: Yes (Hospitalization)
  Sender: FDA-Public Use
  Company Number: None

PATIENT
  Age: 27 Year
  Sex: Male
  Weight: 88.8 kg

DRUGS (3)
  1. FILGRASTIM [Suspect]
     Active Substance: FILGRASTIM
     Dates: end: 20211226
  2. IFOSFAMIDE [Suspect]
     Active Substance: IFOSFAMIDE
     Dates: end: 20211225
  3. TAXOL [Suspect]
     Active Substance: PACLITAXEL
     Dates: end: 20211223

REACTIONS (4)
  - Bone pain [None]
  - Non-cardiac chest pain [None]
  - Pain [None]
  - Lung opacity [None]

NARRATIVE: CASE EVENT DATE: 20211230
